FAERS Safety Report 7901957-4 (Version None)
Quarter: 2011Q4

REPORT INFORMATION
  Report Type: 
  Country: None (occurrence: None)
  Receive Date: 20111108
  Receipt Date: 20111030
  Transmission Date: 20120403
  Serious: Yes (Hospitalization)
  Sender: FDA-Public Use
  Company Number: NZ-B.I. PHARMACEUTICALS,INC./RIDGEFIELD-2011-AU-00814AU

PATIENT
  Age: 70 Year
  Sex: Male

DRUGS (2)
  1. PRADAXA [Suspect]
     Indication: ATRIAL FIBRILLATION
     Dosage: 300 MG
     Route: 048
     Dates: start: 20110714, end: 20110718
  2. WARFARIN SODIUM [Concomitant]
     Dates: end: 20110713

REACTIONS (3)
  - RECTAL HAEMORRHAGE [None]
  - MEDICATION ERROR [None]
  - DIARRHOEA [None]
